FAERS Safety Report 6993321-X (Version None)
Quarter: 2010Q3

REPORT INFORMATION
  Report Type: 
  Country: None (occurrence: None)
  Receive Date: 20100917
  Receipt Date: 20100323
  Transmission Date: 20110219
  Serious: No
  Sender: FDA-Public Use
  Company Number: US-ASTRAZENECA-2010SE13396

PATIENT
  Age: 38 Year
  Sex: Female

DRUGS (2)
  1. SEROQUEL [Suspect]
     Route: 048
     Dates: end: 20080101
  2. SEROQUEL [Suspect]
     Route: 048
     Dates: start: 20080101

REACTIONS (2)
  - ERYTHEMA [None]
  - WEIGHT INCREASED [None]
